FAERS Safety Report 23749711 (Version 3)
Quarter: 2024Q4

REPORT INFORMATION
  Report Type: Spontaneous
  Country: US (occurrence: US)
  Receive Date: 20240416
  Receipt Date: 20241001
  Transmission Date: 20250114
  Serious: No
  Sender: BEIGENE
  Company Number: US-BEIGENE-BGN-2024-005169

PATIENT

DRUGS (1)
  1. BRUKINSA [Suspect]
     Active Substance: ZANUBRUTINIB
     Indication: B-cell small lymphocytic lymphoma
     Dosage: 80 MILLIGRAM, BID
     Route: 048

REACTIONS (3)
  - Abdominal pain upper [Unknown]
  - Product residue present [Unknown]
  - Product physical issue [Unknown]
